FAERS Safety Report 7493460-3 (Version None)
Quarter: 2011Q2

REPORT INFORMATION
  Report Type: 
  Country: None (occurrence: None)
  Receive Date: 20110511
  Receipt Date: 20110428
  Transmission Date: 20111010
  Serious: Yes (Other)
  Sender: FDA-Public Use
  Company Number: 2011SP019079

PATIENT
  Sex: Female

DRUGS (2)
  1. NASONEX [Suspect]
     Indication: EAR INFECTION
     Dates: end: 20100913
  2. NASONEX [Suspect]
     Indication: NASOPHARYNGITIS
     Dates: end: 20100913

REACTIONS (3)
  - SWELLING FACE [None]
  - SWOLLEN TONGUE [None]
  - PHARYNGEAL OEDEMA [None]
